FAERS Safety Report 14410065 (Version 1)
Quarter: 2018Q1

REPORT INFORMATION
  Report Type: Spontaneous
  Country: US (occurrence: US)
  Receive Date: 20180119
  Receipt Date: 20180119
  Transmission Date: 20180509
  Serious: No
  Sender: FDA-Public Use
  Company Number: US-PFIZER INC-2018021636

PATIENT
  Age: 62 Year
  Sex: Female

DRUGS (2)
  1. CHANTIX [Suspect]
     Active Substance: VARENICLINE TARTRATE
     Indication: SMOKING CESSATION THERAPY
     Dosage: UNK
     Dates: start: 20180101
  2. PRIMIDONE. [Concomitant]
     Active Substance: PRIMIDONE
     Indication: TREMOR
     Dosage: UNK

REACTIONS (5)
  - Nausea [Unknown]
  - Dyspepsia [Unknown]
  - Anxiety [Unknown]
  - Tremor [Unknown]
  - Condition aggravated [Unknown]

NARRATIVE: CASE EVENT DATE: 201801
